FAERS Safety Report 9717441 (Version 1)
Quarter: 2013Q4

REPORT INFORMATION
  Report Type: Spontaneous
  Country: US (occurrence: US)
  Receive Date: 20131127
  Receipt Date: 20131127
  Transmission Date: 20140711
  Serious: No
  Sender: FDA-Public Use
  Company Number: US-GILEAD-2009-0019715

PATIENT
  Sex: Female
  Weight: 61.23 kg

DRUGS (12)
  1. LETAIRIS [Suspect]
     Indication: PULMONARY ARTERIAL HYPERTENSION
     Route: 048
     Dates: start: 20081117
  2. REVATIO [Concomitant]
     Route: 048
  3. COUMADIN [Concomitant]
     Route: 048
  4. LASIX [Concomitant]
     Route: 048
  5. OXYGEN [Concomitant]
     Dosage: CONTINUOUS
     Route: 048
  6. ALBUTEROL [Concomitant]
     Route: 055
  7. ADVAIR [Concomitant]
     Route: 055
  8. PREDNISONE [Concomitant]
     Route: 048
  9. OXYCODONE W/APAP [Concomitant]
     Route: 048
  10. POTASSIUM CHLORIDE [Concomitant]
     Route: 048
  11. TUMS [Concomitant]
     Route: 048
  12. MULTIVITAMINS [Concomitant]
     Route: 048

REACTIONS (2)
  - Rhinitis [Unknown]
  - Nasal congestion [Unknown]
